FAERS Safety Report 19362373 (Version 1)
Quarter: 2021Q2

REPORT INFORMATION
  Report Type: Report from Study
  Country: None (occurrence: GB)
  Receive Date: 20210602
  Receipt Date: 20210602
  Transmission Date: 20210717
  Serious: Yes (Hospitalization, Other)
  Sender: FDA-Public Use
  Company Number: GB-ABBVIE-20K-167-3412909-00

PATIENT
  Sex: Female

DRUGS (2)
  1. HUMIRA [Suspect]
     Active Substance: ADALIMUMAB
     Indication: ANKYLOSING SPONDYLITIS
     Route: 058
     Dates: start: 2016
  2. HUMIRA [Suspect]
     Active Substance: ADALIMUMAB
     Route: 058

REACTIONS (16)
  - Dehydration [Unknown]
  - Constipation [Unknown]
  - Immunodeficiency [Unknown]
  - Fear [Unknown]
  - Rash macular [Unknown]
  - Mobility decreased [Unknown]
  - Hip fracture [Unknown]
  - Blood potassium abnormal [Unknown]
  - Weight abnormal [Unknown]
  - Immune system disorder [Unknown]
  - Musculoskeletal disorder [Unknown]
  - Crohn^s disease [Unknown]
  - Herpes zoster [Unknown]
  - Unevaluable event [Unknown]
  - Malaise [Unknown]
  - Blood count abnormal [Unknown]
